FAERS Safety Report 7156157-5 (Version None)
Quarter: 2010Q4

REPORT INFORMATION
  Report Type: 
  Country: None (occurrence: None)
  Receive Date: 20101214
  Receipt Date: 20101203
  Transmission Date: 20110411
  Serious: Yes (Hospitalization)
  Sender: FDA-Public Use
  Company Number: TR-NOVOPROD-319048

PATIENT
  Sex: Male
  Weight: 1.58 kg

DRUGS (2)
  1. NOVORAPID FLEXPEN [Suspect]
     Indication: DRUG EXPOSURE DURING PREGNANCY
     Dosage: 28 U, QD
     Route: 064
     Dates: start: 20100318, end: 20100916
  2. INSULATARD HM PENFILL [Suspect]
     Indication: GESTATIONAL DIABETES
     Dosage: 16 U, QD
     Route: 064
     Dates: start: 20100318, end: 20100916

REACTIONS (2)
  - DRUG EXPOSURE DURING PREGNANCY [None]
  - PREMATURE BABY [None]
